FAERS Safety Report 14813671 (Version 1)
Quarter: 2018Q2

REPORT INFORMATION
  Report Type: Spontaneous
  Country: US (occurrence: US)
  Receive Date: 20180402
  Receipt Date: 20180402
  Transmission Date: 20180711
  Serious: Yes (Disabling)
  Sender: FDA-Public Use
  Company Number: None

PATIENT
  Age: 65 Year
  Sex: Male
  Weight: 74.25 kg

DRUGS (10)
  1. COD LIVER OIL [Concomitant]
     Active Substance: COD LIVER OIL
  2. COQ10 [Concomitant]
     Active Substance: UBIDECARENONE
  3. NATTOKINASE [Concomitant]
     Active Substance: NATTOKINASE
  4. ELIQUIS [Suspect]
     Active Substance: APIXABAN
     Indication: ATRIAL FLUTTER
     Dosage: ?          QUANTITY:1 TABLET(S);?
     Route: 048
     Dates: start: 20170415, end: 20180301
  5. CPAP MACHINE [Concomitant]
  6. VITAMIN E [Concomitant]
     Active Substance: .ALPHA.-TOCOPHEROL
  7. MAGNESIUM [Concomitant]
     Active Substance: MAGNESIUM
  8. VITAMIN D [Concomitant]
     Active Substance: CHOLECALCIFEROL
  9. VITAMIN C [Concomitant]
     Active Substance: ASCORBIC ACID
  10. MULTI-VITAMIN [Concomitant]
     Active Substance: .ALPHA.-TOCOPHEROL ACETATE, DL-\ASCORBIC ACID\CYANOCOBALAMIN\FLUORIDE ION\FOLIC ACID\NIACIN\PYRIDOXINE\RIBOFLAVIN\THIAMINE\VITAMIN A\VITAMIN D

REACTIONS (3)
  - Atrial flutter [None]
  - Dysphagia [None]
  - Cognitive disorder [None]

NARRATIVE: CASE EVENT DATE: 20180301
